FAERS Safety Report 15122035 (Version 1)
Quarter: 2018Q3

REPORT INFORMATION
  Report Type: Spontaneous
  Country: US (occurrence: US)
  Receive Date: 20180709
  Receipt Date: 20180709
  Transmission Date: 20181010
  Serious: Yes (Hospitalization, Other)
  Sender: FDA-Public Use
  Company Number: US-IMPAX LABORATORIES, INC-2018-IPXL-00069

PATIENT
  Age: 68 Year
  Sex: Female
  Weight: 68 kg

DRUGS (4)
  1. AMLODIPINE [Concomitant]
     Active Substance: AMLODIPINE BESYLATE
     Indication: HYPERTENSION
     Dosage: UNK
     Route: 065
  2. RYTARY [Suspect]
     Active Substance: CARBIDOPA\LEVODOPA
     Indication: PARKINSON^S DISEASE
     Dosage: 23.75/95MG, TWO CAPSULE, EVERY TWO TO THREE HOURS
     Route: 048
     Dates: start: 2016
  3. AZATHIOPRINE. [Concomitant]
     Active Substance: AZATHIOPRINE
     Indication: LUPUS MYOSITIS
     Dosage: UNK
     Route: 065
  4. MIRAPEX [Concomitant]
     Active Substance: PRAMIPEXOLE DIHYDROCHLORIDE
     Indication: PARKINSON^S DISEASE
     Dosage: UNK
     Route: 065

REACTIONS (5)
  - Diarrhoea [Unknown]
  - Arthritis [Unknown]
  - Expired product administered [Unknown]
  - Malaise [Recovered/Resolved]
  - Bronchitis [Unknown]

NARRATIVE: CASE EVENT DATE: 201801
